FAERS Safety Report 7460886-3 (Version None)
Quarter: 2011Q2

REPORT INFORMATION
  Report Type: 
  Country: None (occurrence: None)
  Receive Date: 20110505
  Receipt Date: 20110503
  Transmission Date: 20111010
  Serious: Yes (Other)
  Sender: FDA-Public Use
  Company Number: FR-ABBOTT-11P-056-0723360-00

PATIENT
  Age: 50 Year
  Sex: Female

DRUGS (2)
  1. DEPAKENE [Suspect]
     Indication: DEPRESSION
     Route: 048
     Dates: start: 20110124, end: 20110328
  2. ANTIDEPRESSANTS [Suspect]
     Indication: DEPRESSION
     Dosage: 1 IN 1 DAY, COATED
     Route: 048
     Dates: start: 20110228, end: 20110331

REACTIONS (1)
  - CYTOLYTIC HEPATITIS [None]
